FAERS Safety Report 23367334 (Version 1)
Quarter: 2024Q1

REPORT INFORMATION
  Report Type: Spontaneous
  Country: US (occurrence: None)
  Receive Date: 20240104
  Receipt Date: 20240104
  Transmission Date: 20240410
  Serious: No
  Sender: FDA-Public Use
  Company Number: None

PATIENT
  Age: 37 Year
  Sex: Female
  Weight: 45 kg

DRUGS (1)
  1. LISDEXAMFETAMINE DIMESYLATE [Suspect]
     Active Substance: LISDEXAMFETAMINE DIMESYLATE
     Indication: Attention deficit hyperactivity disorder
     Dosage: OTHER QUANTITY : 90 CAPSULE(S);?
     Route: 048
     Dates: end: 20231014

REACTIONS (4)
  - Dizziness [None]
  - Palpitations [None]
  - Fatigue [None]
  - Panic attack [None]

NARRATIVE: CASE EVENT DATE: 20221004
